FAERS Safety Report 9684076 (Version 1)
Quarter: 2013Q4

REPORT INFORMATION
  Report Type: Spontaneous
  Country: US (occurrence: US)
  Receive Date: 20131112
  Receipt Date: 20131112
  Transmission Date: 20140711
  Serious: Yes (Other)
  Sender: FDA-Public Use
  Company Number: US-GLAXOSMITHKLINE-A0978485A

PATIENT
  Sex: Female

DRUGS (1)
  1. BENLYSTA [Suspect]
     Indication: SYSTEMIC LUPUS ERYTHEMATOSUS
     Dosage: 120MG CYCLIC
     Route: 042
     Dates: start: 20120315

REACTIONS (5)
  - Feeling abnormal [Not Recovered/Not Resolved]
  - Parathyroid gland operation [Unknown]
  - Fatigue [Unknown]
  - Cutaneous lupus erythematosus [Unknown]
  - Blood calcium abnormal [Unknown]
